FAERS Safety Report 6691273-3 (Version None)
Quarter: 2010Q2

REPORT INFORMATION
  Report Type: 
  Country: None (occurrence: None)
  Receive Date: 20100416
  Receipt Date: 20100310
  Transmission Date: 20101027
  Serious: Yes (Life-Threatening, Hospitalization)
  Sender: FDA-Public Use
  Company Number: CA-1181509

PATIENT
  Age: 88 Year
  Sex: Female

DRUGS (3)
  1. FLUORESCITE [Suspect]
     Dosage: 5 ML (1ML/SEC) INTRAVENOUS BOLUS
     Route: 040
     Dates: start: 20100107, end: 20100107
  2. ATENOLAL (ATENOLOL) [Concomitant]
  3. ATACAND [Concomitant]

REACTIONS (8)
  - DIZZINESS [None]
  - HEART RATE DECREASED [None]
  - HYPOTENSION [None]
  - MALAISE [None]
  - RASH MACULAR [None]
  - SNEEZING [None]
  - SYNCOPE [None]
  - WHEEZING [None]
